FAERS Safety Report 9175397 (Version 1)
Quarter: 2013Q1

REPORT INFORMATION
  Report Type: Spontaneous
  Country: DE (occurrence: DE)
  Receive Date: 20130320
  Receipt Date: 20130320
  Transmission Date: 20140127
  Serious: Yes (Death, Hospitalization)
  Sender: FDA-Public Use
  Company Number: DE-ROCHE-1203862

PATIENT
  Age: 56 Year
  Sex: Female
  Weight: 92 kg

DRUGS (3)
  1. AVASTIN [Suspect]
     Indication: BREAST CANCER METASTATIC
     Route: 042
     Dates: start: 20121213, end: 20121213
  2. TAXOTERE [Suspect]
     Indication: BREAST CANCER METASTATIC
     Route: 065
     Dates: start: 20020516, end: 20020627
  3. TAXOTERE [Suspect]
     Dosage: LAST DOSE PRIOR TO SAE- 13/DEC/2012
     Route: 042
     Dates: start: 20121122

REACTIONS (5)
  - Intestinal perforation [Fatal]
  - Multi-organ failure [Fatal]
  - General physical health deterioration [Not Recovered/Not Resolved]
  - Urinary tract infection [Unknown]
  - Inflammation [Unknown]
